FAERS Safety Report 14162656 (Version 2)
Quarter: 2017Q4

REPORT INFORMATION
  Report Type: Spontaneous
  Country: FR (occurrence: FR)
  Receive Date: 20171106
  Receipt Date: 20171117
  Transmission Date: 20180321
  Serious: Yes (Hospitalization, Other)
  Sender: FDA-Public Use
  Company Number: FR-PFIZER INC-2017471447

PATIENT
  Age: 63 Year
  Sex: Male

DRUGS (7)
  1. JANUMET [Concomitant]
     Active Substance: METFORMIN HYDROCHLORIDE\SITAGLIPTIN PHOSPHATE
     Dosage: 1 DF, 2X/DAY
  2. DIAMICRON [Suspect]
     Active Substance: GLICLAZIDE
     Dosage: 1 DF, DAILY
     Route: 048
     Dates: start: 201705, end: 201706
  3. COVERAM [Suspect]
     Active Substance: AMLODIPINE\PERINDOPRIL
     Dosage: 1 DF, DAILY
     Route: 048
     Dates: start: 201705, end: 201706
  4. AZARGA [Concomitant]
     Active Substance: BRINZOLAMIDE\TIMOLOL MALEATE
     Dosage: 1 DF, 2X/DAY
  5. DACRYOSERUM /01857501/ [Concomitant]
     Dosage: 3 DF, DAILY
  6. SPASFON /00765801/ [Concomitant]
     Active Substance: PHLOROGLUCINOL\1,3,5-TRIMETHOXYBENZENE
     Indication: ABDOMINAL DISTENSION
     Dosage: 2 DF, 3X/DAY (AS NEEDED)
     Dates: start: 2017
  7. AMLOR [Suspect]
     Active Substance: AMLODIPINE BESYLATE
     Indication: HYPERTENSION
     Dosage: 5 MG, DAILY
     Route: 048
     Dates: start: 201706, end: 20170623

REACTIONS (2)
  - Adrenal insufficiency [Unknown]
  - Hyponatraemia [Recovering/Resolving]

NARRATIVE: CASE EVENT DATE: 201706
